FAERS Safety Report 23494730 (Version 1)
Quarter: 2024Q1

REPORT INFORMATION
  Report Type: Spontaneous
  Country: US (occurrence: None)
  Receive Date: 20240207
  Receipt Date: 20240207
  Transmission Date: 20240410
  Serious: Yes (Hospitalization, Other)
  Sender: FDA-Public Use
  Company Number: None

PATIENT
  Age: 55 Year
  Sex: Male

DRUGS (2)
  1. HUMIRA [Suspect]
     Active Substance: ADALIMUMAB
     Indication: Spinal disorder
     Dosage: FREQUENCY : EVERY OTHER WEEK;?
  2. HUMIRA [Suspect]
     Active Substance: ADALIMUMAB
     Indication: Ankylosing spondylitis

REACTIONS (5)
  - Cerebrovascular accident [None]
  - Eosinophil count increased [None]
  - Cystitis noninfective [None]
  - COVID-19 [None]
  - Cytokine storm [None]
